FAERS Safety Report 7612098-8 (Version None)
Quarter: 2011Q3

REPORT INFORMATION
  Report Type: 
  Country: None (occurrence: None)
  Receive Date: 20110715
  Receipt Date: 20110714
  Transmission Date: 20111222
  Serious: Yes (Death, Hospitalization)
  Sender: FDA-Public Use
  Company Number: IT-B.I. PHARMACEUTICALS,INC./RIDGEFIELD-2011-IT-00168IT

PATIENT
  Sex: Male

DRUGS (9)
  1. ENALAPRIL MALEATE [Concomitant]
  2. XANAX [Concomitant]
  3. AVODART [Concomitant]
  4. AGGRENOX [Suspect]
     Indication: PROPHYLAXIS
     Dosage: 2 POSOLOGIC UNIT
     Route: 048
     Dates: start: 20091201, end: 20100320
  5. CLENIL [Concomitant]
  6. DULOXETINE HYDROCHLORIDE [Concomitant]
  7. BRONCOVALEAS [Concomitant]
  8. RISPERDAL [Concomitant]
  9. BENEXOL [Concomitant]

REACTIONS (1)
  - CEREBRAL HAEMORRHAGE [None]
